FAERS Safety Report 17963118 (Version 1)
Quarter: 2020Q2

REPORT INFORMATION
  Report Type: Report from Study
  Country: None (occurrence: US)
  Receive Date: 20200630
  Receipt Date: 20200630
  Transmission Date: 20200714
  Serious: No
  Sender: FDA-Public Use
  Company Number: US-BIOVITRUM-2020US1361

PATIENT
  Sex: Female

DRUGS (2)
  1. KINERET [Suspect]
     Active Substance: ANAKINRA
     Indication: RHEUMATOID ARTHRITIS
     Route: 058
     Dates: start: 20200228
  2. KINERET [Suspect]
     Active Substance: ANAKINRA
     Indication: HAEMOPHAGOCYTIC LYMPHOHISTIOCYTOSIS

REACTIONS (5)
  - Pruritus [Unknown]
  - Skin atrophy [Unknown]
  - Injection site mass [Unknown]
  - Injection site pain [Unknown]
  - Off label use [Unknown]
